FAERS Safety Report 10271964 (Version 1)
Quarter: 2014Q3

REPORT INFORMATION
  Report Type: Report from Study
  Country: US (occurrence: US)
  Receive Date: 20140702
  Receipt Date: 20140702
  Transmission Date: 20150326
  Serious: Yes (Other)
  Sender: FDA-Public Use
  Company Number: PHEH2014US012914

PATIENT
  Sex: Male

DRUGS (15)
  1. BOTOX [Concomitant]
     Active Substance: ONABOTULINUMTOXINA
  2. HCT ^ISIS^ [Concomitant]
  3. ZANAFLEX [Concomitant]
     Active Substance: TIZANIDINE HYDROCHLORIDE
  4. ADDERALL [Concomitant]
     Active Substance: AMPHETAMINE ASPARTATE\AMPHETAMINE SULFATE\DEXTROAMPHETAMINE SACCHARATE\DEXTROAMPHETAMINE SULFATE
  5. LISINOPRIL. [Concomitant]
     Active Substance: LISINOPRIL
  6. ASPIRIN. [Concomitant]
     Active Substance: ASPIRIN
  7. GILENYA [Suspect]
     Active Substance: FINGOLIMOD HYDROCHLORIDE
     Indication: MULTIPLE SCLEROSIS
     Dosage: 0.5 MG, QD
     Route: 048
     Dates: start: 201308
  8. LANTUS [Concomitant]
     Active Substance: INSULIN GLARGINE
  9. MULTI-VIT [Concomitant]
     Active Substance: VITAMINS
  10. VIT B COMPLEX [Concomitant]
  11. HUMALOG [Concomitant]
     Active Substance: INSULIN LISPRO
  12. SYNTHROID [Concomitant]
     Active Substance: LEVOTHYROXINE SODIUM
  13. BACLOFEN. [Concomitant]
     Active Substance: BACLOFEN
  14. CITALOPRAM [Concomitant]
     Active Substance: CITALOPRAM HYDROBROMIDE
  15. VITAMIN D [Concomitant]
     Active Substance: CHOLECALCIFEROL

REACTIONS (1)
  - Retinopathy [Unknown]
